FAERS Safety Report 4825951-5 (Version None)
Quarter: 2005Q4

REPORT INFORMATION
  Report Type: 
  Country: None (occurrence: None)
  Receive Date: 20051110
  Receipt Date: 20051110
  Transmission Date: 20060501
  Serious: Yes (Hospitalization)
  Sender: FDA-Public Use
  Company Number: None

PATIENT
  Age: 63 Year
  Sex: Male
  Weight: 89 kg

DRUGS (9)
  1. HYDROMORPHONE [Suspect]
     Indication: BACK PAIN
     Dosage: 2MG IV  Q4H  PRN
     Route: 042
     Dates: start: 20051102, end: 20051103
  2. PROMETHAZINE [Suspect]
     Indication: NAUSEA
     Dosage: 25MG/ 1MLIV
     Route: 042
     Dates: start: 20051103, end: 20051103
  3. PROMETHAZINE [Suspect]
     Indication: VOMITING
     Dosage: 25MG/ 1MLIV
     Route: 042
     Dates: start: 20051103, end: 20051103
  4. OXYCODONE [Concomitant]
  5. PIROXICAM [Concomitant]
  6. GABAPENTIN [Concomitant]
  7. ENOXAPARIN SODIUM [Concomitant]
  8. CYCLOBENZAPRINE HCL [Concomitant]
  9. QUININE [Concomitant]

REACTIONS (1)
  - DELIRIUM [None]
